FAERS Safety Report 6397519-3 (Version None)
Quarter: 2009Q4

REPORT INFORMATION
  Report Type: 
  Country: None (occurrence: None)
  Receive Date: 20091012
  Receipt Date: 20090928
  Transmission Date: 20100525
  Serious: Yes (Hospitalization, Other)
  Sender: FDA-Public Use
  Company Number: IT-PFIZER INC-2009237160

PATIENT
  Age: 71 Year

DRUGS (8)
  1. SERTRALINE HCL [Suspect]
     Indication: DEPRESSION
     Dosage: 50 MG, UNK
     Dates: start: 20070917, end: 20071220
  2. AMISULPRIDE [Concomitant]
     Indication: DEPRESSED MOOD
     Dosage: 50 MG, UNK
  3. NICERGOLINE [Concomitant]
     Dosage: 30 MG, UNK
  4. AMLODIPINE [Concomitant]
     Dosage: 5 MG, UNK
  5. CANDESARTAN [Concomitant]
     Dosage: 16 MG, UNK
  6. ATENOLOL [Concomitant]
     Dosage: 25 MG, UNK
  7. DIAZEPAM [Concomitant]
     Indication: DEPRESSED MOOD
     Dosage: 2 MG, AT BEDTIME
  8. ACETYLSALICYLIC ACID [Concomitant]
     Dosage: 100 MG, UNK

REACTIONS (4)
  - BLOOD UREA INCREASED [None]
  - MOBILITY DECREASED [None]
  - MUSCULAR WEAKNESS [None]
  - RHABDOMYOLYSIS [None]
